FAERS Safety Report 21126003 (Version 2)
Quarter: 2022Q3

REPORT INFORMATION
  Report Type: Report from Study
  Country: US (occurrence: US)
  Receive Date: 20220725
  Receipt Date: 20220803
  Transmission Date: 20221027
  Serious: Yes (Hospitalization)
  Sender: FDA-Public Use
  Company Number: US-EXELIXIS-CABO-22054143

PATIENT
  Sex: Female
  Weight: 77.098 kg

DRUGS (17)
  1. CABOMETYX [Suspect]
     Active Substance: CABOZANTINIB S-MALATE
     Indication: Renal cell carcinoma
     Dosage: 40 MG, QD
     Route: 048
     Dates: start: 20211229
  2. LENVIMA [Suspect]
     Active Substance: LENVATINIB
     Indication: Product used for unknown indication
     Dosage: UNK
     Dates: end: 202207
  3. LENVIMA [Suspect]
     Active Substance: LENVATINIB
     Dosage: UNK
     Dates: start: 20220725
  4. EVEROLIMUS [Suspect]
     Active Substance: EVEROLIMUS
     Indication: Product used for unknown indication
  5. LEVOTHYROXINE [Concomitant]
     Active Substance: LEVOTHYROXINE
  6. HYDROCHLOROTHIAZIDE\LOSARTAN [Concomitant]
     Active Substance: HYDROCHLOROTHIAZIDE\LOSARTAN
  7. MELOXICAM [Concomitant]
     Active Substance: MELOXICAM
  8. DOCUSATE SODIUM [Concomitant]
     Active Substance: DOCUSATE SODIUM
  9. PREDNISONE [Concomitant]
     Active Substance: PREDNISONE
  10. ALPRAZOLAM [Concomitant]
     Active Substance: ALPRAZOLAM
  11. HYDROCHLOROTHIAZIDE [Concomitant]
     Active Substance: HYDROCHLOROTHIAZIDE
  12. CLARITIN [Concomitant]
     Active Substance: LORATADINE
  13. PRAVASTATIN SODIUM [Concomitant]
     Active Substance: PRAVASTATIN SODIUM
  14. ASPIRIN [Concomitant]
     Active Substance: ASPIRIN
  15. MIRALAX [Concomitant]
     Active Substance: POLYETHYLENE GLYCOL 3350
  16. PEPCID [Concomitant]
     Active Substance: FAMOTIDINE
  17. NON ASPIRIN [Concomitant]

REACTIONS (7)
  - Arthropathy [Unknown]
  - Impaired healing [Unknown]
  - Blood pressure fluctuation [Not Recovered/Not Resolved]
  - Pruritus [Unknown]
  - Oral pain [Unknown]
  - Rash [Unknown]
  - Blood sodium decreased [Not Recovered/Not Resolved]
